FAERS Safety Report 13001024 (Version 1)
Quarter: 2016Q4

REPORT INFORMATION
  Report Type: Spontaneous
  Country: US (occurrence: US)
  Receive Date: 20161206
  Receipt Date: 20161206
  Transmission Date: 20170207
  Serious: Yes (Other)
  Sender: FDA-Public Use
  Company Number: US-CIPLA LTD.-2016US22363

PATIENT

DRUGS (1)
  1. TENOFOVIR [Suspect]
     Active Substance: TENOFOVIR
     Indication: HIV INFECTION
     Dosage: UNK
     Route: 065

REACTIONS (2)
  - Exposure during pregnancy [Unknown]
  - Caesarean section [Unknown]
